FAERS Safety Report 16830814 (Version 1)
Quarter: 2019Q3

REPORT INFORMATION
  Report Type: Spontaneous
  Country: NL (occurrence: NL)
  Receive Date: 20190920
  Receipt Date: 20190920
  Transmission Date: 20191005
  Serious: Yes (Other)
  Sender: FDA-Public Use
  Company Number: NL-DENTSPLY-2019SCDP000506

PATIENT
  Age: 1 Hour
  Sex: Female
  Weight: 2.85 kg

DRUGS (1)
  1. MEPIVACAINE HCL [Suspect]
     Active Substance: MEPIVACAINE HYDROCHLORIDE
     Indication: EPISIOTOMY
     Dosage: UNK

REACTIONS (3)
  - Systemic toxicity [Recovered/Resolved]
  - Toxicity to various agents [Recovered/Resolved]
  - Foetal exposure during delivery [Recovered/Resolved]
